FAERS Safety Report 23336144 (Version 1)
Quarter: 2023Q4

REPORT INFORMATION
  Report Type: Spontaneous
  Country: JP (occurrence: JP)
  Receive Date: 20231225
  Receipt Date: 20231225
  Transmission Date: 20240110
  Serious: Yes (Death, Other)
  Sender: FDA-Public Use
  Company Number: JP-002147023-NVSJ2023JP017994

PATIENT
  Age: 81 Year
  Sex: Male

DRUGS (1)
  1. VOLTAREN [Suspect]
     Active Substance: DICLOFENAC SODIUM
     Indication: Pyrexia
     Dosage: 25 MG, TID (MORNING , NOON AND EVENING)
     Route: 048

REACTIONS (9)
  - Shock symptom [Fatal]
  - Toxic encephalopathy [Fatal]
  - Circulatory collapse [Unknown]
  - Feeling abnormal [Unknown]
  - Amimia [Unknown]
  - Language disorder [Unknown]
  - Blood pressure decreased [Unknown]
  - Body temperature decreased [Unknown]
  - Apallic syndrome [Unknown]
